FAERS Safety Report 6071560-2 (Version None)
Quarter: 2009Q1

REPORT INFORMATION
  Report Type: 
  Country: None (occurrence: None)
  Receive Date: 20090210
  Receipt Date: 20090206
  Transmission Date: 20090719
  Serious: Yes (Death)
  Sender: FDA-Public Use
  Company Number: JP-JNJFOC-20090201834

PATIENT
  Sex: Female
  Weight: 34 kg

DRUGS (9)
  1. ITRIZOLE [Suspect]
     Indication: RESPIRATORY MONILIASIS
     Route: 041
  2. ITRIZOLE [Suspect]
     Indication: SYSTEMIC CANDIDA
     Route: 041
  3. MEROPEN [Concomitant]
     Route: 042
  4. LASIX [Concomitant]
     Indication: RENAL FAILURE ACUTE
     Route: 042
  5. GLYCYRRHIZIN_GLYCINE_CYSTEINE [Concomitant]
     Indication: HEPATIC FUNCTION ABNORMAL
     Route: 042
  6. ALL OTHER THERAPEUTIC PRODUCTS [Concomitant]
     Route: 042
  7. PREDOPA [Concomitant]
     Indication: SEPTIC SHOCK
     Route: 042
  8. ZANTAC [Concomitant]
     Indication: PROPHYLAXIS
     Route: 042
  9. SOYBEAN OIL [Concomitant]
     Indication: PROPHYLAXIS
     Route: 042

REACTIONS (2)
  - BLOOD PRESSURE DECREASED [None]
  - MULTI-ORGAN FAILURE [None]
